FAERS Safety Report 10841221 (Version 2)
Quarter: 2015Q2

REPORT INFORMATION
  Report Type: Spontaneous
  Country: US (occurrence: US)
  Receive Date: 20150220
  Receipt Date: 20150410
  Transmission Date: 20150821
  Serious: No
  Sender: FDA-Public Use
  Company Number: US-ASTRAZENECA-2015SE15880

PATIENT
  Age: 56 Year
  Sex: Male
  Weight: 104 kg

DRUGS (3)
  1. IBUPROFEN. [Concomitant]
     Active Substance: IBUPROFEN
  2. ASPIRIN. [Concomitant]
     Active Substance: ASPIRIN
  3. NEXIUM 24HR [Suspect]
     Active Substance: ESOMEPRAZOLE MAGNESIUM
     Dosage: DAILY
     Route: 048

REACTIONS (2)
  - Intentional product misuse [Unknown]
  - Diarrhoea [Unknown]
